FAERS Safety Report 7762903-X (Version None)
Quarter: 2011Q3

REPORT INFORMATION
  Report Type: 
  Country: None (occurrence: None)
  Receive Date: 20110920
  Receipt Date: 20110912
  Transmission Date: 20111222
  Serious: Yes (Other)
  Sender: FDA-Public Use
  Company Number: CHPA2011US12531

PATIENT
  Age: 57 Year
  Sex: Female

DRUGS (5)
  1. VOLTAREN [Suspect]
     Indication: ARTHRALGIA
  2. TOPAMAX [Concomitant]
     Indication: NEUROPATHY PERIPHERAL
     Dosage: 1 DF, QHS
  3. VOLTAREN [Suspect]
     Indication: MUSCULOSKELETAL PAIN
     Dosage: 3 OZ, QD
     Route: 061
  4. PERCOCET [Concomitant]
  5. NEURONTIN [Concomitant]
     Indication: NEUROPATHY PERIPHERAL
     Dosage: UNK, TID

REACTIONS (7)
  - CARPAL TUNNEL SYNDROME [None]
  - THERAPEUTIC RESPONSE UNEXPECTED [None]
  - DIABETES MELLITUS [None]
  - OFF LABEL USE [None]
  - DRUG ADMINISTERED AT INAPPROPRIATE SITE [None]
  - DRUG DISPENSING ERROR [None]
  - BLOOD GLUCOSE INCREASED [None]
